FAERS Safety Report 22355541 (Version 1)
Quarter: 2023Q2

REPORT INFORMATION
  Report Type: Spontaneous
  Country: US (occurrence: US)
  Receive Date: 20230523
  Receipt Date: 20230523
  Transmission Date: 20230722
  Serious: No
  Sender: FDA-Public Use
  Company Number: US-PFIZER INC-US-GBT-019713

PATIENT
  Age: 50 Year
  Sex: Male

DRUGS (1)
  1. OXBRYTA [Suspect]
     Active Substance: VOXELOTOR
     Dosage: 1500 MG, 1X/DAY
     Route: 048

REACTIONS (4)
  - Blood bilirubin increased [Unknown]
  - Fatigue [Unknown]
  - Wrong technique in product usage process [Unknown]
  - Wrong dose [Unknown]

NARRATIVE: CASE EVENT DATE: 20230120
